FAERS Safety Report 17819824 (Version 1)
Quarter: 2020Q2

REPORT INFORMATION
  Report Type: Spontaneous
  Country: MX (occurrence: MX)
  Receive Date: 20200524
  Receipt Date: 20200524
  Transmission Date: 20200714
  Serious: Yes (Other)
  Sender: FDA-Public Use
  Company Number: MX-NOVOPROD-729022

PATIENT
  Sex: Female
  Weight: 105 kg

DRUGS (11)
  1. ANTIGRAM [Concomitant]
     Indication: MIGRAINE
     Dosage: 10 MG
     Route: 065
  2. MAZDA [Concomitant]
     Indication: ANXIETY
     Dosage: 75 MG
     Route: 065
  3. SAXENDA [Suspect]
     Active Substance: LIRAGLUTIDE
     Indication: OBESITY
     Dosage: 3 MG, QD
     Route: 065
     Dates: start: 201910
  4. SAXENDA [Suspect]
     Active Substance: LIRAGLUTIDE
     Dosage: 1.8 MG, QD (DECREASED DOSE OF 1.8 MG)
     Route: 065
     Dates: start: 201912
  5. SAXENDA [Suspect]
     Active Substance: LIRAGLUTIDE
     Dosage: 2.4 MG, QD
     Route: 065
  6. ATEMPERATOR [VALPROIC ACID] [Concomitant]
     Active Substance: VALPROIC ACID
     Indication: MIGRAINE
     Dosage: 200 MG
     Route: 065
  7. BIO ELECTRO [Concomitant]
     Indication: ANXIETY
     Dosage: UNK
     Route: 065
  8. SAXENDA [Suspect]
     Active Substance: LIRAGLUTIDE
     Dosage: 3 MG, QD
     Route: 065
  9. METFORMIN [Concomitant]
     Active Substance: METFORMIN HYDROCHLORIDE
     Indication: INSULIN RESISTANCE
     Dosage: 1000 MG
     Route: 065
  10. AKSPRI [Concomitant]
     Active Substance: METFORMIN HYDROCHLORIDE
     Indication: INSULIN RESISTANCE
     Dosage: UNK
     Route: 065
  11. ZYDILO [Concomitant]
     Indication: ANXIETY
     Dosage: 200 MG
     Route: 065

REACTIONS (16)
  - Hypophagia [Unknown]
  - Anxiety [Recovered/Resolved]
  - Feeling of despair [Recovered/Resolved]
  - Weight loss poor [Not Recovered/Not Resolved]
  - Gastrooesophageal reflux disease [Recovered/Resolved]
  - Lethargy [Recovered/Resolved]
  - Food aversion [Recovered/Resolved]
  - Laziness [Recovered/Resolved]
  - Headache [Recovered/Resolved]
  - Gastrooesophageal reflux disease [Recovered/Resolved]
  - Drug ineffective [Unknown]
  - Headache [Recovered/Resolved]
  - Somnolence [Recovered/Resolved]
  - Anxiety [Recovered/Resolved]
  - Weight increased [Unknown]
  - Food aversion [Recovered/Resolved]

NARRATIVE: CASE EVENT DATE: 201912
